FAERS Safety Report 13091161 (Version 2)
Quarter: 2017Q1

REPORT INFORMATION
  Report Type: Report from Study
  Country: None (occurrence: US)
  Receive Date: 20170106
  Receipt Date: 20170305
  Transmission Date: 20170428
  Serious: Yes (Death)
  Sender: FDA-Public Use
  Company Number: US-ABBVIE-17K-163-1830844-00

PATIENT
  Age: 72 Year
  Sex: Female

DRUGS (1)
  1. HUMIRA [Suspect]
     Active Substance: ADALIMUMAB
     Indication: CROHN^S DISEASE
     Route: 058
     Dates: end: 201612

REACTIONS (4)
  - Vomiting [Fatal]
  - Lung abscess [Fatal]
  - Hypoxia [Fatal]
  - Pneumonia [Fatal]

NARRATIVE: CASE EVENT DATE: 201612
